FAERS Safety Report 6983150-5 (Version None)
Quarter: 2010Q3

REPORT INFORMATION
  Report Type: 
  Country: None (occurrence: None)
  Receive Date: 20100914
  Receipt Date: 20100628
  Transmission Date: 20110219
  Serious: Yes (Other)
  Sender: FDA-Public Use
  Company Number: US-PFIZER INC-2010081851

PATIENT
  Sex: Female

DRUGS (1)
  1. LYRICA [Suspect]
     Dosage: 100 MG/DAY

REACTIONS (4)
  - CELLULITIS [None]
  - RASH VESICULAR [None]
  - SKIN ULCER [None]
  - SWELLING FACE [None]
